FAERS Safety Report 10868690 (Version 2)
Quarter: 2015Q1

REPORT INFORMATION
  Report Type: Report from Study
  Country: US (occurrence: US)
  Receive Date: 20150225
  Receipt Date: 20150303
  Transmission Date: 20150721
  Serious: Yes (Death, Hospitalization)
  Sender: FDA-Public Use
  Company Number: US-EISAI MEDICAL RESEARCH-EC-2015-004179

PATIENT
  Age: 70 Year
  Sex: Male

DRUGS (2)
  1. CETUXIMAB [Concomitant]
     Active Substance: CETUXIMAB
     Indication: HEAD AND NECK CANCER
     Route: 041
     Dates: start: 20150217, end: 20150224
  2. ERIBULIN [Suspect]
     Active Substance: ERIBULIN
     Indication: HEAD AND NECK CANCER
     Route: 041
     Dates: start: 20150209, end: 20150209

REACTIONS (2)
  - Respiratory tract infection [Fatal]
  - Febrile neutropenia [Recovered/Resolved]

NARRATIVE: CASE EVENT DATE: 20150218
